FAERS Safety Report 9721389 (Version 3)
Quarter: 2014Q1

REPORT INFORMATION
  Report Type: Spontaneous
  Country: US (occurrence: US)
  Receive Date: 20131129
  Receipt Date: 20140115
  Transmission Date: 20141002
  Serious: No
  Sender: FDA-Public Use
  Company Number: US-PFIZER INC-2013339794

PATIENT
  Age: 66 Year
  Sex: Female
  Weight: 79.37 kg

DRUGS (4)
  1. XELJANZ [Suspect]
     Indication: RHEUMATOID ARTHRITIS
     Dosage: 5 MG, 2X/DAY
     Route: 048
     Dates: start: 20130801
  2. TOPROL [Concomitant]
     Dosage: UNK
  3. PREDNISOLONE [Concomitant]
     Indication: RHEUMATOID ARTHRITIS
     Dosage: UNK
  4. PREDNISONE [Concomitant]
     Dosage: 5 MG

REACTIONS (2)
  - Enzyme abnormality [Unknown]
  - Drug ineffective [Unknown]
